FAERS Safety Report 9708706 (Version 2)
Quarter: 2014Q1

REPORT INFORMATION
  Report Type: Spontaneous
  Country: US (occurrence: US)
  Receive Date: 20131125
  Receipt Date: 20140205
  Transmission Date: 20141002
  Serious: Yes (Hospitalization)
  Sender: FDA-Public Use
  Company Number: US-GLAXOSMITHKLINE-A1050446A

PATIENT
  Age: 33 Year
  Sex: Female

DRUGS (13)
  1. ADVAIR [Suspect]
     Indication: ASTHMA
     Dosage: 1PUFF PER DAY
     Route: 055
     Dates: start: 1995
  2. FLOVENT [Concomitant]
  3. VENTOLIN [Concomitant]
  4. VICKS VAPORUB [Concomitant]
  5. ASPIRIN [Concomitant]
  6. FLUTICASONE NASAL SPRAY [Concomitant]
  7. SENOKOT [Concomitant]
  8. TYLENOL [Concomitant]
  9. DOXEPIN [Concomitant]
  10. METOPROLOL TARTRATE [Concomitant]
  11. ACETIC ACID [Concomitant]
  12. LORATADINE [Concomitant]
  13. MSM + GLUCOSAMINE [Concomitant]

REACTIONS (16)
  - Upper respiratory tract infection [Recovered/Resolved]
  - Stress [Recovered/Resolved]
  - Off label use [Unknown]
  - Chest pain [Recovered/Resolved]
  - Blood pressure increased [Recovered/Resolved]
  - Nervousness [Recovered/Resolved]
  - Blood potassium decreased [Recovered/Resolved]
  - White blood cell count increased [Recovered/Resolved]
  - Pneumonia [Recovered/Resolved]
  - Diverticulitis [Recovered/Resolved]
  - Tremor [Recovered/Resolved]
  - Heart rate increased [Recovered/Resolved]
  - Dysphonia [Recovered/Resolved]
  - Dysphonia [Recovered/Resolved]
  - Hernia [Recovered/Resolved]
  - Abdominal pain upper [Recovered/Resolved]
